FAERS Safety Report 13039752 (Version 1)
Quarter: 2016Q4

REPORT INFORMATION
  Report Type: Spontaneous
  Country: US (occurrence: US)
  Receive Date: 20161219
  Receipt Date: 20161219
  Transmission Date: 20170207
  Serious: No
  Sender: FDA-Public Use
  Company Number: US-ACTELION-A-US2016-139351

PATIENT
  Age: 43 Year
  Sex: Male

DRUGS (20)
  1. AMBRISENTAN [Suspect]
     Active Substance: AMBRISENTAN
     Indication: PULMONARY ARTERIAL HYPERTENSION
     Dosage: 10 MG, QD
     Route: 065
     Dates: start: 20120710
  2. LINEZOLID. [Concomitant]
     Active Substance: LINEZOLID
  3. ASPIRIN. [Concomitant]
     Active Substance: ASPIRIN
  4. SPIRONOLACTONE. [Concomitant]
     Active Substance: SPIRONOLACTONE
  5. POTASSIUM CHLORIDE. [Concomitant]
     Active Substance: POTASSIUM CHLORIDE
  6. PREDNISONE. [Concomitant]
     Active Substance: PREDNISONE
  7. ONDASETRON [Concomitant]
     Active Substance: ONDANSETRON
  8. DILTIAZEM CD [Concomitant]
     Active Substance: DILTIAZEM
  9. LASIX [Concomitant]
     Active Substance: FUROSEMIDE
  10. MATZIM LA [Concomitant]
     Active Substance: DILTIAZEM HYDROCHLORIDE
  11. CALCIUM [Concomitant]
     Active Substance: CALCIUM
  12. METFORMIN [Concomitant]
     Active Substance: METFORMIN HYDROCHLORIDE
  13. OMEPRAZOLE. [Concomitant]
     Active Substance: OMEPRAZOLE
  14. UPTRAVI [Suspect]
     Active Substance: SELEXIPAG
     Indication: PULMONARY ARTERIAL HYPERTENSION
     Dosage: UNK
     Route: 048
  15. ADCIRCA [Concomitant]
     Active Substance: TADALAFIL
  16. KEPPRA [Concomitant]
     Active Substance: LEVETIRACETAM
  17. WARFARIN [Concomitant]
     Active Substance: WARFARIN
  18. CLARITHROMYCIN. [Concomitant]
     Active Substance: CLARITHROMYCIN
  19. ERYTHROMYCIN. [Concomitant]
     Active Substance: ERYTHROMYCIN
  20. DOXYCYCLINE. [Concomitant]
     Active Substance: DOXYCYCLINE

REACTIONS (1)
  - Headache [Unknown]

NARRATIVE: CASE EVENT DATE: 20160615
